FAERS Safety Report 5001999-5 (Version None)
Quarter: 2006Q2

REPORT INFORMATION
  Report Type: 
  Country: None (occurrence: None)
  Receive Date: 20060511
  Receipt Date: 20060511
  Transmission Date: 20061013
  Serious: Yes (Death)
  Sender: FDA-Public Use
  Company Number: None

PATIENT
  Age: 83 Year
  Sex: Male
  Weight: 90.7194 kg

DRUGS (10)
  1. LOVENOX [Suspect]
     Indication: TRANSIENT ISCHAEMIC ATTACK
     Dosage: 90 MG Q 12 HR SQ
     Route: 058
     Dates: start: 20060327, end: 20060331
  2. COUMADIN [Suspect]
     Indication: ATRIAL FIBRILLATION
  3. ASPIRIN [Concomitant]
  4. APAP TAB [Concomitant]
  5. PERCOCET [Concomitant]
  6. PRANDIN [Concomitant]
  7. NEURONTIN [Concomitant]
  8. VIT K [Concomitant]
  9. PROTAMINE [Concomitant]
  10. ATENOLOL [Concomitant]

REACTIONS (1)
  - RETROPERITONEAL HAEMORRHAGE [None]
